FAERS Safety Report 25228126 (Version 1)
Quarter: 2025Q2

REPORT INFORMATION
  Report Type: Spontaneous
  Country: IT (occurrence: IT)
  Receive Date: 20250423
  Receipt Date: 20250423
  Transmission Date: 20250717
  Serious: Yes (Other)
  Sender: RANBAXY
  Company Number: IT-SUN PHARMACEUTICAL INDUSTRIES LTD-2025RR-504472

PATIENT
  Age: 83 Year
  Sex: Female

DRUGS (1)
  1. OLANZAPINE [Suspect]
     Active Substance: OLANZAPINE
     Indication: Generalised anxiety disorder
     Dosage: 7.5 MILLIGRAM, DAILY
     Route: 065

REACTIONS (1)
  - Hypothermia [Recovered/Resolved]
